FAERS Safety Report 14235110 (Version 2)
Quarter: 2018Q1

REPORT INFORMATION
  Report Type: Spontaneous
  Country: IT (occurrence: IT)
  Receive Date: 20171129
  Receipt Date: 20180126
  Transmission Date: 20180508
  Serious: Yes (Other)
  Sender: FDA-Public Use
  Company Number: IT-009507513-1711ITA005794

PATIENT
  Age: 57 Year
  Sex: Female

DRUGS (1)
  1. SINVACOR 10 MG COMPRESSE RIVESTITE CON FILM [Suspect]
     Active Substance: SIMVASTATIN
     Dosage: IN TOTAL
     Route: 048
     Dates: start: 20171111, end: 20171111

REACTIONS (3)
  - Periorbital oedema [Recovered/Resolved]
  - Paraesthesia oral [Recovered/Resolved]
  - Hypersensitivity [Recovered/Resolved]

NARRATIVE: CASE EVENT DATE: 20171112
